FAERS Safety Report 6998941-4 (Version None)
Quarter: 2010Q3

REPORT INFORMATION
  Report Type: 
  Country: None (occurrence: None)
  Receive Date: 20100920
  Receipt Date: 20100527
  Transmission Date: 20110219
  Serious: Yes (Other)
  Sender: FDA-Public Use
  Company Number: US-ASTRAZENECA-2008UW20465

PATIENT
  Age: 18201 Day
  Sex: Male
  Weight: 92.1 kg

DRUGS (4)
  1. SEROQUEL [Suspect]
     Route: 048
     Dates: start: 20060424
  2. REMERON [Concomitant]
  3. SYNTHROID [Concomitant]
     Dates: start: 20070101
  4. TRICOR [Concomitant]

REACTIONS (3)
  - DIABETES MELLITUS [None]
  - ERECTILE DYSFUNCTION [None]
  - TYPE 2 DIABETES MELLITUS [None]
